FAERS Safety Report 17916780 (Version 3)
Quarter: 2020Q4

REPORT INFORMATION
  Report Type: Spontaneous
  Country: US (occurrence: US)
  Receive Date: 20200619
  Receipt Date: 20201015
  Transmission Date: 20210113
  Serious: Yes (Other)
  Sender: FDA-Public Use
  Company Number: US-PFIZER INC-2020213977

PATIENT
  Age: 54 Year
  Sex: Female

DRUGS (2)
  1. BRAFTOVI [Suspect]
     Active Substance: ENCORAFENIB
     Indication: MALIGNANT MELANOMA
     Dosage: 450 MG, DAILY (TAKE 6 CAPSULES BY MOUTH ONCE DAILY)
     Route: 048
     Dates: start: 20200403
  2. MEKTOVI [Suspect]
     Active Substance: BINIMETINIB
     Indication: MALIGNANT MELANOMA
     Dosage: 45 MG, 2X/DAY
     Dates: start: 20200403

REACTIONS (6)
  - Fatigue [Unknown]
  - Nausea [Unknown]
  - Diarrhoea [Unknown]
  - Vomiting [Unknown]
  - Hypoaesthesia [Unknown]
  - Guillain-Barre syndrome [Unknown]
